FAERS Safety Report 6341327-6 (Version None)
Quarter: 2009Q3

REPORT INFORMATION
  Report Type: 
  Country: None (occurrence: None)
  Receive Date: 20090904
  Receipt Date: 20090825
  Transmission Date: 20100115
  Serious: Yes (Hospitalization)
  Sender: FDA-Public Use
  Company Number: PHHY2009FR35725

PATIENT
  Age: 74 Year
  Sex: Female

DRUGS (7)
  1. ZOMETA [Suspect]
     Indication: BREAST CANCER
     Dosage: 4 MG, UNK
     Dates: start: 20090305
  2. XELODA [Suspect]
     Dosage: 1500 MG, BID
     Dates: start: 20090305, end: 20090312
  3. LAPATINIB [Suspect]
     Dosage: 1250 MG, QD
     Dates: start: 20090305, end: 20090312
  4. CHEMOTHERAPEUTICS,OTHER [Concomitant]
  5. GABAPENTIN [Concomitant]
  6. EFFERALGAN CODEINE [Concomitant]
  7. ESOMEPRAZOLE [Concomitant]

REACTIONS (12)
  - AZOTAEMIA [None]
  - BLOOD OSMOLARITY INCREASED [None]
  - BODY TEMPERATURE DECREASED [None]
  - DIARRHOEA [None]
  - HYPERCREATINAEMIA [None]
  - HYPERLIPASAEMIA [None]
  - HYPONATRAEMIA [None]
  - MALAISE [None]
  - ORTHOSTATIC HYPOTENSION [None]
  - PANCREATITIS [None]
  - RENAL FAILURE [None]
  - WEIGHT DECREASED [None]
